FAERS Safety Report 4845487-5 (Version None)
Quarter: 2005Q4

REPORT INFORMATION
  Report Type: 
  Country: None (occurrence: None)
  Receive Date: 20051205
  Receipt Date: 20051124
  Transmission Date: 20060501
  Serious: Yes (Other)
  Sender: FDA-Public Use
  Company Number: PHBS2005SE17292

PATIENT
  Age: 71 Year
  Sex: Male

DRUGS (1)
  1. SANDIMMUNE [Suspect]
     Route: 065

REACTIONS (2)
  - MYOPATHY [None]
  - TRANSAMINASES INCREASED [None]
